FAERS Safety Report 7386929-3 (Version None)
Quarter: 2011Q1

REPORT INFORMATION
  Report Type: 
  Country: None (occurrence: None)
  Receive Date: 20110331
  Receipt Date: 20110325
  Transmission Date: 20110831
  Serious: Yes (Hospitalization)
  Sender: FDA-Public Use
  Company Number: IT-SANOFI-AVENTIS-2011SA017937

PATIENT
  Age: 77 Year
  Sex: Male

DRUGS (11)
  1. ENOXAPARIN SODIUM [Suspect]
     Indication: PROPHYLAXIS
     Route: 058
     Dates: start: 20101227, end: 20101229
  2. SIMVASTATIN [Concomitant]
     Route: 065
  3. LANTUS [Concomitant]
     Route: 065
  4. ALLOPURINOL [Concomitant]
     Route: 065
  5. CALCIUM CARBONATE [Concomitant]
     Route: 065
  6. ASPIRIN [Suspect]
     Indication: PROPHYLAXIS
     Route: 048
     Dates: start: 20101227, end: 20101229
  7. CARVEDILOL [Concomitant]
     Route: 065
  8. COUMADIN [Concomitant]
     Indication: ATRIAL FIBRILLATION
     Route: 048
     Dates: start: 20050101, end: 20101227
  9. ENOXAPARIN SODIUM [Suspect]
     Route: 058
     Dates: start: 20101229
  10. KARVEA [Concomitant]
     Route: 065
  11. HUMULIN R [Concomitant]
     Route: 065

REACTIONS (3)
  - ANAEMIA [None]
  - OESOPHAGITIS [None]
  - GASTRITIS EROSIVE [None]
